FAERS Safety Report 16012700 (Version 1)
Quarter: 2019Q1

REPORT INFORMATION
  Report Type: Spontaneous
  Country: FR (occurrence: FR)
  Receive Date: 20190227
  Receipt Date: 20190227
  Transmission Date: 20190418
  Serious: Yes (Hospitalization)
  Sender: FDA-Public Use
  Company Number: FR-TEVA-2019-FR-1016179

PATIENT
  Age: 57 Year
  Sex: Female
  Weight: 56 kg

DRUGS (10)
  1. ATENOLOL. [Suspect]
     Active Substance: ATENOLOL
     Indication: INTENTIONAL OVERDOSE
     Route: 048
     Dates: start: 20180903, end: 20180903
  2. ACAMPROSATE BIOGARAN 333 MG, COMPRIM? PELLICUL? GASTRO-R?SISTANT [Suspect]
     Active Substance: ACAMPROSATE CALCIUM
     Indication: INTENTIONAL OVERDOSE
     Route: 048
     Dates: start: 20180903, end: 20180903
  3. PREGABALINE [Suspect]
     Active Substance: PREGABALIN
     Indication: INTENTIONAL OVERDOSE
     Route: 048
     Dates: start: 20180903, end: 20180903
  4. VALSARTAN. [Suspect]
     Active Substance: VALSARTAN
     Indication: INTENTIONAL OVERDOSE
     Route: 048
     Dates: start: 20180903, end: 20180903
  5. AMLODIPINE [Suspect]
     Active Substance: AMLODIPINE BESYLATE
     Indication: INTENTIONAL OVERDOSE
     Route: 048
     Dates: start: 20180903, end: 20180903
  6. FLUOXETINE (CHLORHYDRATE DE) [Suspect]
     Active Substance: FLUOXETINE HYDROCHLORIDE
     Indication: INTENTIONAL OVERDOSE
     Route: 048
     Dates: start: 20180903, end: 20180903
  7. DOXYLAMINE (SUCCINATE DE) [Suspect]
     Active Substance: DOXYLAMINE SUCCINATE
     Indication: INTENTIONAL OVERDOSE
     Route: 048
     Dates: start: 20180903, end: 20180903
  8. BENERVA 250 MG, COMPRIM? ENROB? [Concomitant]
  9. NALTREXONE (CHLORHYDRATE DE) [Concomitant]
     Active Substance: NALTREXONE
  10. IMOVANE [Concomitant]
     Active Substance: ZOPICLONE

REACTIONS (2)
  - Coma [Recovered/Resolved]
  - Seizure [Recovered/Resolved]

NARRATIVE: CASE EVENT DATE: 20180903
